FAERS Safety Report 8127029-4 (Version None)
Quarter: 2012Q1

REPORT INFORMATION
  Report Type: 
  Country: None (occurrence: None)
  Receive Date: 20120210
  Receipt Date: 20120207
  Transmission Date: 20120608
  Serious: No
  Sender: FDA-Public Use
  Company Number: US-PFIZER INC-2012033551

PATIENT
  Sex: Female

DRUGS (3)
  1. AMOXICILLIN [Suspect]
     Indication: TOOTHACHE
     Dosage: UNK
  2. VICODIN [Suspect]
     Indication: TOOTHACHE
     Dosage: UNK
  3. IBUPROFEN (ADVIL) [Suspect]
     Indication: TOOTHACHE
     Dosage: UNK

REACTIONS (1)
  - SWELLING FACE [None]
